FAERS Safety Report 13302904 (Version 2)
Quarter: 2017Q1

REPORT INFORMATION
  Report Type: Report from Study
  Country: US (occurrence: US)
  Receive Date: 20170307
  Receipt Date: 20170315
  Transmission Date: 20170428
  Serious: No
  Sender: FDA-Public Use
  Company Number: US-009507513-1702USA010318

PATIENT
  Age: 64 Year
  Sex: Female

DRUGS (3)
  1. LIOTHYRONINE SODIUM. [Concomitant]
     Active Substance: LIOTHYRONINE SODIUM
  2. PEMBROLIZUMAB. [Suspect]
     Active Substance: PEMBROLIZUMAB
     Indication: TONSIL CANCER
     Dosage: 200 MG, EVERY 3 WEEKS
     Route: 042
     Dates: start: 20161117
  3. TIROSINT [Concomitant]
     Active Substance: LEVOTHYROXINE SODIUM

REACTIONS (6)
  - Hypersensitivity [Recovering/Resolving]
  - Hot flush [Unknown]
  - Cough [Not Recovered/Not Resolved]
  - Insomnia [Recovering/Resolving]
  - Dysphonia [Not Recovered/Not Resolved]
  - Product use issue [Unknown]

NARRATIVE: CASE EVENT DATE: 20161117
